FAERS Safety Report 9720569 (Version 1)
Quarter: 2013Q4

REPORT INFORMATION
  Report Type: Spontaneous
  Country: US (occurrence: US)
  Receive Date: 20131129
  Receipt Date: 20131129
  Transmission Date: 20140711
  Serious: Yes (Other)
  Sender: FDA-Public Use
  Company Number: US-AMGEN-USASP2013084089

PATIENT
  Age: 52 Year
  Sex: Female

DRUGS (2)
  1. ENBREL [Suspect]
     Indication: PSORIASIS
     Dosage: 50 MG, 2 TIMES/WK
     Route: 065
     Dates: start: 20130822, end: 201311
  2. CELEBREX [Concomitant]
     Indication: OSTEOARTHRITIS
     Dosage: UNK

REACTIONS (4)
  - SAPHO syndrome [Not Recovered/Not Resolved]
  - Rash maculo-papular [Not Recovered/Not Resolved]
  - Rash erythematous [Not Recovered/Not Resolved]
  - Psoriasis [Not Recovered/Not Resolved]
